FAERS Safety Report 12118138 (Version 1)
Quarter: 2016Q1

REPORT INFORMATION
  Report Type: Spontaneous
  Country: RO (occurrence: US)
  Receive Date: 20160226
  Receipt Date: 20160226
  Transmission Date: 20160526
  Serious: Yes (Other)
  Sender: FDA-Public Use
  Company Number: RO-PAR PHARMACEUTICAL COMPANIES-2016SCPR015188

PATIENT

DRUGS (5)
  1. ALLOPURINOL. [Concomitant]
     Active Substance: ALLOPURINOL
     Indication: GOUT
     Dosage: 1 DF, BID
     Route: 065
     Dates: start: 2015
  2. REVATIO [Suspect]
     Active Substance: SILDENAFIL CITRATE
     Dosage: 9 DF, UNKNOWN
     Route: 048
     Dates: start: 201501
  3. REVATIO [Suspect]
     Active Substance: SILDENAFIL CITRATE
     Indication: PULMONARY HYPERTENSION
     Dosage: 3 DF, TID
     Route: 048
     Dates: start: 201407
  4. FLUID PILL [Concomitant]
     Indication: FLUID RETENTION
     Dosage: UNK, UNKNOWN
     Route: 065
  5. GLIPIZIDE. [Suspect]
     Active Substance: GLIPIZIDE
     Indication: DIABETES MELLITUS
     Dosage: 1 DF, BID
     Route: 065

REACTIONS (4)
  - Chronic kidney disease [Recovering/Resolving]
  - Weight increased [Recovering/Resolving]
  - Gout [Recovering/Resolving]
  - Depression [Recovering/Resolving]

NARRATIVE: CASE EVENT DATE: 2015
